FAERS Safety Report 18625752 (Version 1)
Quarter: 2020Q4

REPORT INFORMATION
  Report Type: Spontaneous
  Country: IE (occurrence: IE)
  Receive Date: 20201217
  Receipt Date: 20201217
  Transmission Date: 20210114
  Serious: Yes (Hospitalization)
  Sender: FDA-Public Use
  Company Number: IE-AMGEN-IRLSP2020204162

PATIENT
  Sex: Male

DRUGS (1)
  1. ENBREL [Suspect]
     Active Substance: ETANERCEPT
     Indication: RHEUMATOID ARTHRITIS
     Dosage: 50 MILLIGRAM
     Route: 058

REACTIONS (1)
  - Gait disturbance [Unknown]
